FAERS Safety Report 9892615 (Version 2)
Quarter: 2014Q1

REPORT INFORMATION
  Report Type: Spontaneous
  Country: KZ (occurrence: KZ)
  Receive Date: 20140212
  Receipt Date: 20140212
  Transmission Date: 20141002
  Serious: Yes (Hospitalization)
  Sender: FDA-Public Use
  Company Number: KZ-009507513-1312KAZ006824

PATIENT
  Age: 49 Year
  Sex: Male

DRUGS (8)
  1. REBETOL [Suspect]
     Indication: CHRONIC HEPATITIS C
     Dosage: TOTAL DAILY DOSE 800 MG
     Route: 048
     Dates: start: 20130927
  2. REBETOL [Suspect]
     Dosage: TOTAL DAILY DOSE 800 MG
     Route: 048
     Dates: start: 20140106
  3. PEGINTERFERON ALFA-2B [Suspect]
     Indication: CHRONIC HEPATITIS C
     Dosage: TOTAL DAILY DOSE 120 MICROGRAM
     Dates: start: 20130927
  4. PEGINTERFERON ALFA-2B [Suspect]
     Dosage: TOTAL DAILY DOSE 60 MICROGRAM
     Dates: start: 20140106
  5. ELTROMBOPAG OLAMINE [Concomitant]
     Dosage: 25 MG ONCE PER 2 DAYS
     Dates: start: 20131209
  6. RECORMON [Concomitant]
     Dosage: 200 IU, TWICE PER WEEK
     Dates: start: 20131209
  7. FOLIC ACID [Concomitant]
     Dosage: TID
     Route: 048
     Dates: start: 20131209
  8. REVOLADE [Concomitant]
     Dosage: TOTAL DAILY DOSE 25 MG, DAILY
     Dates: start: 20131209

REACTIONS (18)
  - Biliary cirrhosis [Not Recovered/Not Resolved]
  - Portal hypertension [Unknown]
  - Ascites [Unknown]
  - Body temperature increased [Unknown]
  - Weight decreased [Unknown]
  - White blood cell count decreased [Unknown]
  - Red blood cell count decreased [Unknown]
  - Haemoglobin decreased [Unknown]
  - Vertigo [Unknown]
  - Asthenia [Recovered/Resolved]
  - Thrombocytopenia [Not Recovered/Not Resolved]
  - Leukopenia [Not Recovered/Not Resolved]
  - Hypochromic anaemia [Not Recovered/Not Resolved]
  - Weight decreased [Not Recovered/Not Resolved]
  - Blood immunoglobulin E increased [Unknown]
  - Gamma-glutamyltransferase increased [Unknown]
  - Neutrophil count decreased [Unknown]
  - Monocyte count increased [Unknown]
